FAERS Safety Report 7280442-X (Version None)
Quarter: 2011Q1

REPORT INFORMATION
  Report Type: 
  Country: None (occurrence: None)
  Receive Date: 20110208
  Receipt Date: 20110203
  Transmission Date: 20110831
  Serious: Yes (Other)
  Sender: FDA-Public Use
  Company Number: IE-ROCHE-746252

PATIENT
  Sex: Female

DRUGS (4)
  1. BONIVA [Suspect]
     Indication: OSTEOPOROSIS
     Dosage: STARTED ON EARLY  SEPT 2010
     Route: 048
     Dates: start: 20100901
  2. ZANTAC [Concomitant]
  3. IDEOS [Concomitant]
  4. GLUCOSAMINE [Concomitant]

REACTIONS (3)
  - RASH [None]
  - SKIN BURNING SENSATION [None]
  - PRURITUS [None]
